FAERS Safety Report 9496639 (Version 1)
Quarter: 2013Q3

REPORT INFORMATION
  Report Type: Spontaneous
  Country: GB (occurrence: None)
  Receive Date: 20130828
  Receipt Date: 20130828
  Transmission Date: 20140515
  Serious: Yes (Disabling)
  Sender: FDA-Public Use
  Company Number: ENTC2013-0309

PATIENT
  Age: 81 Year
  Sex: Female

DRUGS (6)
  1. STALEVO (LEVODOPA, CARBIDOPA, ENTACAPONE) [Suspect]
  2. ANGITIL SR [Concomitant]
  3. ASPIRIN [Concomitant]
  4. BENDROFLUMETHIAZIDE [Concomitant]
  5. CEFALEXIN [Concomitant]
  6. CO-BENELDOPA [Concomitant]

REACTIONS (7)
  - Diarrhoea [None]
  - Flushing [None]
  - Dry mouth [None]
  - Dry throat [None]
  - Dysgeusia [None]
  - Hot flush [None]
  - Erythema [None]
